FAERS Safety Report 11179968 (Version 1)
Quarter: 2015Q2

REPORT INFORMATION
  Report Type: Other
  Country: US (occurrence: US)
  Receive Date: 20150611
  Receipt Date: 20150611
  Transmission Date: 20150821
  Serious: Yes (Other)
  Sender: FDA-Public Use
  Company Number: US-ACORDA-ACO_112248_2015

PATIENT
  Sex: Female

DRUGS (1)
  1. AMPYRA [Suspect]
     Active Substance: DALFAMPRIDINE
     Indication: MULTIPLE SCLEROSIS
     Dosage: 10 MG, BID
     Route: 048
     Dates: start: 20130806

REACTIONS (6)
  - Erythema [Recovering/Resolving]
  - Multiple sclerosis [Recovering/Resolving]
  - Visual impairment [Recovering/Resolving]
  - Amnesia [Recovering/Resolving]
  - Flushing [Recovering/Resolving]
  - Clumsiness [Recovering/Resolving]
